FAERS Safety Report 5315186-4 (Version None)
Quarter: 2007Q2

REPORT INFORMATION
  Report Type: 
  Country: None (occurrence: None)
  Receive Date: 20070427
  Receipt Date: 20070413
  Transmission Date: 20071010
  Serious: Yes (Hospitalization, Other)
  Sender: FDA-Public Use
  Company Number: 2007RR-06944

PATIENT
  Age: 84 Year
  Sex: Female

DRUGS (7)
  1. FUROSEMIDE [Suspect]
     Indication: OEDEMA PERIPHERAL
     Dosage: 80 MG, QD
  2. XIPAMIDE (XIPAMIDE) [Suspect]
     Indication: OEDEMA PERIPHERAL
     Dosage: 40 MG, QD
  3. DIGITALIS TAB [Concomitant]
  4. THYROID HORMONE [Concomitant]
  5. LORAZEPAM [Concomitant]
  6. B2-MIMETIC AEROSOL [Concomitant]
  7. POTASSIUM ACETATE [Concomitant]

REACTIONS (5)
  - BLOOD POTASSIUM DECREASED [None]
  - CONFUSIONAL STATE [None]
  - HYPOVOLAEMIA [None]
  - RENAL FAILURE [None]
  - SYNCOPE [None]
